FAERS Safety Report 5567606-8 (Version None)
Quarter: 2007Q4

REPORT INFORMATION
  Report Type: 
  Country: None (occurrence: None)
  Receive Date: 20071214
  Receipt Date: 20071212
  Transmission Date: 20080405
  Serious: Yes (Death)
  Sender: FDA-Public Use
  Company Number: RENA-12340

PATIENT
  Age: 54 Year
  Sex: Female

DRUGS (15)
  1. RENAGEL [Suspect]
     Indication: HYPERPHOSPHATAEMIA
     Dates: start: 20070411, end: 20070924
  2. RENAGEL [Suspect]
     Indication: RENAL FAILURE CHRONIC
     Dates: start: 20070411, end: 20070924
  3. BISOPROLOL FUMARATE [Concomitant]
  4. CLOPIDOGREL [Concomitant]
  5. ISOSORBIDE DINITRATE [Concomitant]
  6. RAPEPRAZOLE [Concomitant]
  7. ACETAMINOPHEN [Concomitant]
  8. MEDICON A. [Concomitant]
  9. EPOGEN [Concomitant]
  10. CALCITRIOL [Concomitant]
  11. SENNOSIDES [Concomitant]
  12. BISACODYL [Concomitant]
  13. VITAMIN B COMPLEX CAP [Concomitant]
  14. FOLIC ACID [Concomitant]
  15. INSULIN [Concomitant]

REACTIONS (3)
  - CARDIOGENIC SHOCK [None]
  - CHEST DISCOMFORT [None]
  - CORONARY ARTERY DISEASE [None]
